FAERS Safety Report 25787260 (Version 1)
Quarter: 2025Q3

REPORT INFORMATION
  Report Type: Report from Study
  Country: RU (occurrence: RU)
  Receive Date: 20250910
  Receipt Date: 20250910
  Transmission Date: 20251021
  Serious: Yes (Other)
  Sender: ALEXION PHARMACEUTICALS
  Company Number: RU-AstraZeneca-CH-00942985A

PATIENT
  Sex: Female
  Weight: 59 kg

DRUGS (1)
  1. SELUMETINIB [Suspect]
     Active Substance: SELUMETINIB
     Indication: Neurofibromatosis
     Dosage: 80 MILLIGRAM, BID
     Dates: start: 20230616

REACTIONS (15)
  - Arthralgia [Recovering/Resolving]
  - Fatigue [Recovering/Resolving]
  - Headache [Recovering/Resolving]
  - Rash [Recovering/Resolving]
  - Alopecia [Recovering/Resolving]
  - Retinopathy [Unknown]
  - Scratch [Unknown]
  - Acne [Unknown]
  - Paronychia [Unknown]
  - Seborrhoeic dermatitis [Unknown]
  - Xerosis [Unknown]
  - Pancreatic disorder [Unknown]
  - Iris disorder [Unknown]
  - Myopia [Unknown]
  - Chronic tonsillitis [Unknown]
